FAERS Safety Report 24525638 (Version 1)
Quarter: 2024Q4

REPORT INFORMATION
  Report Type: Spontaneous
  Country: US (occurrence: US)
  Receive Date: 20241020
  Receipt Date: 20241020
  Transmission Date: 20250115
  Serious: No
  Sender: BRISTOL-MYERS SQUIBB COMPANY
  Company Number: US-BRISTOL-MYERS SQUIBB COMPANY-2024-164404

PATIENT
  Age: 81 Year
  Sex: Male

DRUGS (1)
  1. SPRYCEL [Suspect]
     Active Substance: DASATINIB
     Indication: Chronic myeloid leukaemia
     Dosage: FREQUENCY: 1 TABLET BY MOUTH 1 TIME A DAY ON MONDAY, TUESDAY, THURSDAY AND FRIDAY EVERY WEEK
     Route: 048
     Dates: start: 202303

REACTIONS (2)
  - Emergency care examination [Unknown]
  - Off label use [Unknown]
